FAERS Safety Report 12061665 (Version 2)
Quarter: 2016Q1

REPORT INFORMATION
  Report Type: Other
  Country: PT (occurrence: PT)
  Receive Date: 20160210
  Receipt Date: 20160219
  Transmission Date: 20160526
  Serious: Yes (Other)
  Sender: FDA-Public Use
  Company Number: PT-IGI LABORATORIES, INC.-1047606

PATIENT
  Age: 51 Year
  Sex: Female

DRUGS (5)
  1. ONDANSETRON [Concomitant]
     Active Substance: ONDANSETRON
  2. DEXAMETHASONE. [Concomitant]
     Active Substance: DEXAMETHASONE
  3. CLEMASTINE FUMARATE. [Concomitant]
     Active Substance: CLEMASTINE FUMARATE
  4. ZANTAC [Suspect]
     Active Substance: RANITIDINE HYDROCHLORIDE
     Indication: PREMEDICATION
     Route: 042
  5. CARBOPLATIN. [Suspect]
     Active Substance: CARBOPLATIN

REACTIONS (14)
  - Angioedema [Recovered/Resolved]
  - Hypoxia [Recovered/Resolved]
  - Presyncope [Recovered/Resolved]
  - Malaise [Unknown]
  - Urticaria [Recovered/Resolved]
  - Periorbital disorder [Recovered/Resolved]
  - Hypotension [Recovered/Resolved]
  - Flushing [Unknown]
  - Anaphylactic reaction [Recovered/Resolved]
  - Throat tightness [Recovered/Resolved]
  - Chest discomfort [Recovered/Resolved]
  - Tachycardia [Recovered/Resolved]
  - Generalised erythema [Recovered/Resolved]
  - Vomiting [Recovered/Resolved]
